FAERS Safety Report 14861716 (Version 1)
Quarter: 2018Q2

REPORT INFORMATION
  Report Type: Spontaneous
  Country: CA (occurrence: CA)
  Receive Date: 20180422
  Receipt Date: 20180422
  Transmission Date: 20180711
  Serious: Yes (Disabling)
  Sender: FDA-Public Use
  Company Number: None

PATIENT
  Age: 30 Year
  Sex: Female
  Weight: 51.75 kg

DRUGS (2)
  1. PREDNISONE. [Suspect]
     Active Substance: PREDNISONE
     Indication: RASH
     Route: 048
     Dates: start: 20141001, end: 20141009
  2. BETAMETHASONE CREAM/OINTMENT BLEND [Suspect]
     Active Substance: BETAMETHASONE
     Indication: RASH
     Route: 061
     Dates: start: 20141001, end: 20141201

REACTIONS (2)
  - Rash [None]
  - Steroid withdrawal syndrome [None]

NARRATIVE: CASE EVENT DATE: 20140930
